FAERS Safety Report 25931883 (Version 1)
Quarter: 2025Q4

REPORT INFORMATION
  Report Type: Spontaneous
  Country: LB (occurrence: LB)
  Receive Date: 20251016
  Receipt Date: 20251016
  Transmission Date: 20260118
  Serious: Yes (Other)
  Sender: NOVARTIS
  Company Number: LB-002147023-NVSC2025LB159671

PATIENT
  Age: 72 Year
  Sex: Male

DRUGS (2)
  1. CYCLOSPORINE [Suspect]
     Active Substance: CYCLOSPORINE
     Indication: Chronic actinic dermatitis
     Dosage: 300 MG, QD
     Route: 065
  2. CYCLOSPORINE [Suspect]
     Active Substance: CYCLOSPORINE
     Dosage: 100 MG, QD
     Route: 065

REACTIONS (3)
  - Chronic actinic dermatitis [Unknown]
  - Rebound effect [Unknown]
  - Off label use [Unknown]
